FAERS Safety Report 16435310 (Version 1)
Quarter: 2019Q2

REPORT INFORMATION
  Report Type: Report from Study
  Country: US (occurrence: US)
  Receive Date: 20190614
  Receipt Date: 20190614
  Transmission Date: 20190711
  Serious: Yes (Hospitalization)
  Sender: FDA-Public Use
  Company Number: US-MYLANLABS-2019M1054976

PATIENT
  Age: 56 Year
  Sex: Female
  Weight: 57.5 kg

DRUGS (1)
  1. PREDNISONE. [Suspect]
     Active Substance: PREDNISONE
     Indication: ACUTE GRAFT VERSUS HOST DISEASE
     Dosage: 25 MILLIGRAM, QD
     Route: 048
     Dates: start: 20190415

REACTIONS (3)
  - Klebsiella test positive [Recovered/Resolved]
  - Clostridium test positive [Recovered/Resolved]
  - Asthenia [Recovering/Resolving]

NARRATIVE: CASE EVENT DATE: 20190421
